FAERS Safety Report 20553159 (Version 1)
Quarter: 2022Q1

REPORT INFORMATION
  Report Type: Report from Study
  Country: US (occurrence: US)
  Receive Date: 20220304
  Receipt Date: 20220304
  Transmission Date: 20220423
  Serious: Yes (Other)
  Sender: FDA-Public Use
  Company Number: US-TAKEDA-2022TUS014213

PATIENT
  Sex: Male

DRUGS (1)
  1. IXAZOMIB [Suspect]
     Active Substance: IXAZOMIB
     Indication: Product used for unknown indication
     Dosage: UNK
     Route: 065

REACTIONS (7)
  - Elbow operation [Unknown]
  - Hypersomnia [Unknown]
  - Weight decreased [Unknown]
  - Feeding disorder [Unknown]
  - Asthenia [Unknown]
  - Vomiting [Unknown]
  - Product dose omission issue [Unknown]
